FAERS Safety Report 6275009-6 (Version None)
Quarter: 2009Q3

REPORT INFORMATION
  Report Type: 
  Country: None (occurrence: None)
  Receive Date: 20090717
  Receipt Date: 20090630
  Transmission Date: 20100115
  Serious: Yes (Hospitalization)
  Sender: FDA-Public Use
  Company Number: 8048193

PATIENT
  Age: 54 Year
  Sex: Female
  Weight: 55 kg

DRUGS (4)
  1. CDP870 [Suspect]
     Indication: CROHN'S DISEASE
     Dosage: 400 MG 1/2W SC
     Route: 058
     Dates: start: 20040705, end: 20040802
  2. CDP870 [Suspect]
     Indication: CROHN'S DISEASE
     Dosage: 400 MG /M SC
     Route: 058
     Dates: start: 20040830, end: 20041215
  3. CDP870 [Suspect]
     Indication: CROHN'S DISEASE
     Dosage: 400 MG /M SC
     Route: 058
     Dates: start: 20050112
  4. PENTASA [Concomitant]

REACTIONS (1)
  - PYELONEPHRITIS [None]
